FAERS Safety Report 6434953-7 (Version None)
Quarter: 2009Q4

REPORT INFORMATION
  Report Type: 
  Country: None (occurrence: None)
  Receive Date: 20091110
  Receipt Date: 20091102
  Transmission Date: 20100525
  Serious: Yes (Other)
  Sender: FDA-Public Use
  Company Number: JP-JNJFOC-20091101756

PATIENT

DRUGS (1)
  1. RISPERDAL [Suspect]
     Indication: DRUG USE FOR UNKNOWN INDICATION
     Dosage: APPROXIMATELY 1 MG/DAY
     Route: 048

REACTIONS (2)
  - ELECTROENCEPHALOGRAM ABNORMAL [None]
  - EPILEPSY [None]
